FAERS Safety Report 9210678 (Version 1)
Quarter: 2013Q2

REPORT INFORMATION
  Report Type: Spontaneous
  Country: US (occurrence: US)
  Receive Date: 20130404
  Receipt Date: 20130404
  Transmission Date: 20140414
  Serious: No
  Sender: FDA-Public Use
  Company Number: US-PFIZER INC-2013102848

PATIENT
  Age: 39 Year
  Sex: Male

DRUGS (1)
  1. RAPAMUNE [Suspect]
     Dosage: 1 MG, DAILY
     Dates: start: 20120727

REACTIONS (2)
  - Chest pain [Unknown]
  - Dehydration [Unknown]
